FAERS Safety Report 6314456-0 (Version None)
Quarter: 2009Q3

REPORT INFORMATION
  Report Type: 
  Country: None (occurrence: None)
  Receive Date: 20090819
  Receipt Date: 20090814
  Transmission Date: 20100115
  Serious: Yes (Hospitalization)
  Sender: FDA-Public Use
  Company Number: AU-BRISTOL-MYERS SQUIBB COMPANY-14665012

PATIENT
  Age: 6 Decade
  Sex: Female
  Weight: 68 kg

DRUGS (1)
  1. ABILIFY [Suspect]
     Indication: BIPOLAR DISORDER
     Dosage: 1DF: TWO ATYPICALS WITH ABILIFY

REACTIONS (1)
  - MANIA [None]
